FAERS Safety Report 25267971 (Version 1)
Quarter: 2025Q2

REPORT INFORMATION
  Report Type: Spontaneous
  Country: US (occurrence: US)
  Receive Date: 20250505
  Receipt Date: 20250505
  Transmission Date: 20250716
  Serious: Yes (Other)
  Sender: ACCORD
  Company Number: US-MLMSERVICE-20250418-PI482952-00082-1

PATIENT
  Age: 69 Year
  Sex: Female

DRUGS (19)
  1. CARBOPLATIN [Suspect]
     Active Substance: CARBOPLATIN
     Indication: Lung adenocarcinoma stage IV
  2. PEMETREXED [Suspect]
     Active Substance: PEMETREXED
     Indication: Lung adenocarcinoma stage IV
  3. ETHOSUXIMIDE [Concomitant]
     Active Substance: ETHOSUXIMIDE
     Indication: Seizure
  4. ESTRADIOL [Concomitant]
     Active Substance: ESTRADIOL
     Route: 067
  5. LEVETIRACETAM [Concomitant]
     Active Substance: LEVETIRACETAM
     Indication: Seizure
  6. OSIMERTINIB [Concomitant]
     Active Substance: OSIMERTINIB
     Indication: Lung adenocarcinoma stage IV
  7. PHENYTOIN [Concomitant]
     Active Substance: PHENYTOIN
     Indication: Seizure
     Dosage: SINCE CHILDHOOD, SHE WAS MAINTAINED ON 200 MG PHENYTOIN DAILY (WITH HIGHER DOSING 1-2 TIMES
  8. CARBOPLATIN [Suspect]
     Active Substance: CARBOPLATIN
     Indication: Metastases to spine
  9. CARBOPLATIN [Suspect]
     Active Substance: CARBOPLATIN
     Indication: Metastases to bone
  10. CARBOPLATIN [Suspect]
     Active Substance: CARBOPLATIN
     Indication: Malignant neoplasm progression
  11. OSIMERTINIB [Concomitant]
     Active Substance: OSIMERTINIB
     Indication: Metastases to central nervous system
  12. PEMETREXED [Suspect]
     Active Substance: PEMETREXED
     Indication: Metastases to spine
  13. OSIMERTINIB [Concomitant]
     Active Substance: OSIMERTINIB
     Indication: Metastases to spine
  14. PEMETREXED [Suspect]
     Active Substance: PEMETREXED
     Indication: Metastases to bone
  15. OSIMERTINIB [Concomitant]
     Active Substance: OSIMERTINIB
     Indication: Metastases to bone
  16. PEMETREXED [Suspect]
     Active Substance: PEMETREXED
     Indication: Malignant neoplasm progression
  17. OSIMERTINIB [Concomitant]
     Active Substance: OSIMERTINIB
     Indication: Malignant neoplasm progression
  18. CARBOPLATIN [Suspect]
     Active Substance: CARBOPLATIN
     Indication: Metastases to central nervous system
  19. PEMETREXED [Suspect]
     Active Substance: PEMETREXED
     Indication: Metastases to central nervous system

REACTIONS (5)
  - Pulmonary embolism [Recovered/Resolved]
  - Cytopenia [Unknown]
  - Decreased appetite [Unknown]
  - Fatigue [Unknown]
  - Off label use [Unknown]
